FAERS Safety Report 7644740-X (Version None)
Quarter: 2011Q3

REPORT INFORMATION
  Report Type: 
  Country: None (occurrence: None)
  Receive Date: 20110729
  Receipt Date: 20110720
  Transmission Date: 20111222
  Serious: Yes (Other)
  Sender: FDA-Public Use
  Company Number: US-ASTRAZENECA-2011SE43708

PATIENT
  Sex: Female

DRUGS (8)
  1. RADINE [Concomitant]
  2. CRESTOR [Suspect]
     Route: 048
  3. ESTRASE [Concomitant]
  4. LYRICA [Concomitant]
  5. MORPHINE [Concomitant]
  6. FLEXERIL [Concomitant]
  7. ATIVAN [Concomitant]
  8. TOPAMAX [Concomitant]

REACTIONS (1)
  - CONVULSION [None]
